FAERS Safety Report 17533534 (Version 2)
Quarter: 2020Q2

REPORT INFORMATION
  Report Type: Spontaneous
  Country: US (occurrence: US)
  Receive Date: 20200312
  Receipt Date: 20200529
  Transmission Date: 20200713
  Serious: Yes (Other)
  Sender: FDA-Public Use
  Company Number: US-ASTRAZENECA-2020SE34112

PATIENT
  Age: 19891 Day
  Sex: Female
  Weight: 98 kg

DRUGS (66)
  1. PROMETHAZINE [Concomitant]
     Active Substance: PROMETHAZINE HYDROCHLORIDE
  2. CLINDAMYCIN HCL [Concomitant]
     Active Substance: CLINDAMYCIN HYDROCHLORIDE
  3. HYDRALAZINE [Concomitant]
     Active Substance: HYDRALAZINE HYDROCHLORIDE
  4. PRAZOSIN. [Concomitant]
     Active Substance: PRAZOSIN
  5. LISINOPRIL. [Concomitant]
     Active Substance: LISINOPRIL
     Indication: BLOOD PRESSURE ABNORMAL
     Dates: start: 2020
  6. AMLODIPINE [Concomitant]
     Active Substance: AMLODIPINE BESYLATE
     Indication: BLOOD PRESSURE ABNORMAL
     Dates: start: 2020
  7. SINGULAIR [Concomitant]
     Active Substance: MONTELUKAST SODIUM
     Indication: ASTHMA
     Dates: start: 2016
  8. ACETAMINOPHEN. [Concomitant]
     Active Substance: ACETAMINOPHEN
     Indication: PAIN
  9. PEPCID [Concomitant]
     Active Substance: FAMOTIDINE
  10. AMLODIPINE BESYLATE. [Concomitant]
     Active Substance: AMLODIPINE BESYLATE
  11. LEVOFLOXACIN. [Concomitant]
     Active Substance: LEVOFLOXACIN
  12. HYDROXYCHLOROQUINE [Concomitant]
     Active Substance: HYDROXYCHLOROQUINE
  13. PROAIR HFA [Concomitant]
     Active Substance: ALBUTEROL SULFATE
  14. ADVAIR HFA [Concomitant]
     Active Substance: FLUTICASONE PROPIONATE\SALMETEROL XINAFOATE
  15. TRAMADOL HCL [Concomitant]
     Active Substance: TRAMADOL HYDROCHLORIDE
  16. RESTASIS [Concomitant]
     Active Substance: CYCLOSPORINE
  17. CARVEDILOL. [Concomitant]
     Active Substance: CARVEDILOL
  18. LIDOCAINE HCL [Concomitant]
     Active Substance: LIDOCAINE HYDROCHLORIDE
  19. DICLOFENAC SODIUM. [Concomitant]
     Active Substance: DICLOFENAC SODIUM
  20. CELLCEPT [Concomitant]
     Active Substance: MYCOPHENOLATE MOFETIL\MYCOPHENOLATE MOFETIL HYDROCHLORIDE
     Dates: start: 2016
  21. AMPICILLIN [Concomitant]
     Active Substance: AMPICILLIN
     Dates: start: 2016
  22. NEXIUM [Suspect]
     Active Substance: ESOMEPRAZOLE MAGNESIUM
     Indication: GASTROOESOPHAGEAL REFLUX DISEASE
     Dosage: GENERIC
     Route: 065
  23. LOKELMA [Concomitant]
     Active Substance: SODIUM ZIRCONIUM CYCLOSILICATE
     Indication: BLOOD POTASSIUM ABNORMAL
     Dates: start: 2020
  24. ZOLOFT [Concomitant]
     Active Substance: SERTRALINE HYDROCHLORIDE
     Indication: DEPRESSION
     Dates: start: 2018
  25. ZANTAC [Concomitant]
     Active Substance: RANITIDINE HYDROCHLORIDE
  26. HYDROXYZINE [Concomitant]
     Active Substance: HYDROXYZINE HYDROCHLORIDE
  27. ONDANSETRON [Concomitant]
     Active Substance: ONDANSETRON
  28. PREDNISONE. [Concomitant]
     Active Substance: PREDNISONE
  29. KETOCONAZOLE. [Concomitant]
     Active Substance: KETOCONAZOLE
  30. IPRATROPIUM [Concomitant]
     Active Substance: IPRATROPIUM
  31. BUPROPION HCL [Concomitant]
     Active Substance: BUPROPION HYDROCHLORIDE
  32. DITROPAN [Concomitant]
     Active Substance: OXYBUTYNIN CHLORIDE
  33. NEXIUM [Suspect]
     Active Substance: ESOMEPRAZOLE MAGNESIUM
     Indication: GASTROOESOPHAGEAL REFLUX DISEASE
     Route: 048
     Dates: start: 20140829
  34. ABILIFY [Concomitant]
     Active Substance: ARIPIPRAZOLE
     Indication: BIPOLAR DISORDER
     Dates: start: 2016
  35. FLUOCINONIDE. [Concomitant]
     Active Substance: FLUOCINONIDE
  36. VESICARE [Concomitant]
     Active Substance: SOLIFENACIN SUCCINATE
  37. TRIDERM [Concomitant]
     Active Substance: TRIAMCINOLONE ACETONIDE
  38. AMIDATE [Concomitant]
     Active Substance: ETOMIDATE
     Dates: start: 2016
  39. NEXIUM [Suspect]
     Active Substance: ESOMEPRAZOLE MAGNESIUM
     Indication: GASTROOESOPHAGEAL REFLUX DISEASE
     Dosage: GENERIC
     Route: 065
     Dates: start: 20170918
  40. LYRICA [Concomitant]
     Active Substance: PREGABALIN
  41. NITROFURANTOIN. [Concomitant]
     Active Substance: NITROFURANTOIN
  42. MELATONIN [Concomitant]
     Active Substance: MELATONIN
  43. NITROSTAT [Concomitant]
     Active Substance: NITROGLYCERIN
  44. CEFUROXIME AXETIL. [Concomitant]
     Active Substance: CEFUROXIME AXETIL
  45. BENZONATATE. [Concomitant]
     Active Substance: BENZONATATE
  46. VITAMIN D3 [Concomitant]
     Active Substance: CHOLECALCIFEROL
  47. ULTIVA [Concomitant]
     Active Substance: REMIFENTANIL HYDROCHLORIDE
     Dates: start: 2016
  48. GABAPENTIN. [Concomitant]
     Active Substance: GABAPENTIN
     Indication: PAIN
     Dates: start: 2019
  49. TRAMADOL. [Concomitant]
     Active Substance: TRAMADOL
  50. METOPROLOL TARTRATE. [Concomitant]
     Active Substance: METOPROLOL TARTRATE
  51. CALCITRIOL. [Concomitant]
     Active Substance: CALCITRIOL
  52. NARCAN [Concomitant]
     Active Substance: NALOXONE HYDROCHLORIDE
     Dates: start: 2016
  53. NEXIUM [Suspect]
     Active Substance: ESOMEPRAZOLE MAGNESIUM
     Indication: GASTROOESOPHAGEAL REFLUX DISEASE
     Route: 048
     Dates: start: 2011
  54. LEVOTHYROXINE. [Concomitant]
     Active Substance: LEVOTHYROXINE
     Indication: HYPOTHYROIDISM
     Dates: start: 2016
  55. CALCIUM CITRATE [Concomitant]
     Active Substance: CALCIUM CITRATE
     Indication: BLOOD PHOSPHORUS
     Dates: start: 2016
  56. ISOSORBIDE. [Concomitant]
     Active Substance: ISOSORBIDE
  57. ALBUTEROL SUL [Concomitant]
  58. WARFARIN SODIUM. [Concomitant]
     Active Substance: WARFARIN SODIUM
  59. DOXYCYCLINE. [Concomitant]
     Active Substance: DOXYCYCLINE
  60. CORTEF [Concomitant]
     Active Substance: HYDROCORTISONE
     Dates: start: 2016
  61. NEXIUM [Suspect]
     Active Substance: ESOMEPRAZOLE MAGNESIUM
     Indication: GASTROOESOPHAGEAL REFLUX DISEASE
     Route: 048
     Dates: start: 2010, end: 2017
  62. NEXIUM [Suspect]
     Active Substance: ESOMEPRAZOLE MAGNESIUM
     Indication: GASTROOESOPHAGEAL REFLUX DISEASE
     Route: 048
     Dates: start: 2002
  63. NEXIUM [Suspect]
     Active Substance: ESOMEPRAZOLE MAGNESIUM
     Indication: GASTROOESOPHAGEAL REFLUX DISEASE
     Route: 048
     Dates: start: 20150112
  64. PLAQUENIL [Concomitant]
     Active Substance: HYDROXYCHLOROQUINE SULFATE
     Dates: start: 2016
  65. SUCRALFATE. [Concomitant]
     Active Substance: SUCRALFATE
  66. CEPHALEXIN. [Concomitant]
     Active Substance: CEPHALEXIN

REACTIONS (6)
  - Nephrogenic anaemia [Unknown]
  - End stage renal disease [Unknown]
  - Chronic kidney disease-mineral and bone disorder [Unknown]
  - Chronic kidney disease [Not Recovered/Not Resolved]
  - Acute kidney injury [Unknown]
  - Renal failure [Unknown]

NARRATIVE: CASE EVENT DATE: 20151202
